FAERS Safety Report 18484522 (Version 2)
Quarter: 2021Q1

REPORT INFORMATION
  Report Type: Spontaneous
  Country: JP (occurrence: JP)
  Receive Date: 20201110
  Receipt Date: 20210312
  Transmission Date: 20210419
  Serious: Yes (Life-Threatening, Hospitalization, Other)
  Sender: FDA-Public Use
  Company Number: JP-ROCHE-2652215

PATIENT
  Age: 81 Year
  Sex: Male
  Weight: 67 kg

DRUGS (10)
  1. LIXIANA OD [Concomitant]
     Active Substance: EDOXABAN TOSYLATE
  2. TECENTRIQ [Suspect]
     Active Substance: ATEZOLIZUMAB
     Indication: LUNG ADENOCARCINOMA
     Route: 041
     Dates: start: 20200608, end: 20200629
  3. BISOPROLOL FUMARATE. [Concomitant]
     Active Substance: BISOPROLOL FUMARATE
     Dosage: DOSAGE IS UNCERTAIN.
     Route: 065
  4. MIKELAN LA [Concomitant]
     Active Substance: CARTEOLOL HYDROCHLORIDE
  5. ZOLPIDEM TARTRATE. [Concomitant]
     Active Substance: ZOLPIDEM TARTRATE
     Dosage: DOSAGE IS UNCERTAIN.
     Route: 048
  6. OMEPRAZOLE. [Concomitant]
     Active Substance: OMEPRAZOLE
     Dosage: DOSAGE IS UNCERTAIN.
     Route: 048
  7. TRAZENTA [Concomitant]
     Active Substance: LINAGLIPTIN
  8. TECENTRIQ [Suspect]
     Active Substance: ATEZOLIZUMAB
     Route: 041
     Dates: start: 2020
  9. TORASEMIDE [Concomitant]
     Active Substance: TORSEMIDE
     Dosage: DOSAGE IS UNCERTAIN.
     Route: 048
  10. AMLODIPINE [Concomitant]
     Active Substance: AMLODIPINE BESYLATE
     Dosage: DOSAGE IS UNCERTAIN.
     Route: 048

REACTIONS (2)
  - Erythema multiforme [Recovered/Resolved]
  - Myocarditis [Recovered/Resolved]

NARRATIVE: CASE EVENT DATE: 20200701
